FAERS Safety Report 20539929 (Version 1)
Quarter: 2022Q1

REPORT INFORMATION
  Report Type: Report from Study
  Country: FR (occurrence: FR)
  Receive Date: 20220302
  Receipt Date: 20220302
  Transmission Date: 20220423
  Serious: Yes (Other)
  Sender: FDA-Public Use
  Company Number: FR-JNJFOC-20211057075

PATIENT
  Age: 74 Year
  Sex: Female

DRUGS (3)
  1. DARATUMUMAB [Suspect]
     Active Substance: DARATUMUMAB
     Indication: Product used for unknown indication
     Dosage: 1 INTAKE(S)/WEEK 2 WEEK(S)/ CYCLE, LINE 4
     Route: 065
     Dates: end: 20190704
  2. LENALIDOMIDE [Suspect]
     Active Substance: LENALIDOMIDE
     Indication: Product used for unknown indication
     Dosage: LINE 4
     Route: 065
     Dates: end: 20190704
  3. DEXAMETHASONE [Suspect]
     Active Substance: DEXAMETHASONE
     Indication: Product used for unknown indication
     Dosage: LINE 4
     Route: 065
     Dates: end: 20190704

REACTIONS (4)
  - Nephropathy toxic [Unknown]
  - Infection [Unknown]
  - Off label use [Unknown]
  - Product use issue [Unknown]
